FAERS Safety Report 16660157 (Version 2)
Quarter: 2019Q3

REPORT INFORMATION
  Report Type: Report from Study
  Country: CN (occurrence: CN)
  Receive Date: 20190802
  Receipt Date: 20190819
  Transmission Date: 20191004
  Serious: Yes (Other)
  Sender: FDA-Public Use
  Company Number: CN-AUROBINDO-AUR-APL-2019-045767

PATIENT

DRUGS (9)
  1. MELPHALAN INJECTION [Suspect]
     Active Substance: MELPHALAN
     Indication: RETINOBLASTOMA
     Dosage: 0.1 ML MELPHALAN SOLUTION (20-40MCG)
  2. ATROPINE. [Concomitant]
     Active Substance: ATROPINE
     Indication: PUPIL DILATION PROCEDURE
     Dosage: UNK
     Route: 065
  3. MELPHALAN INJECTION [Suspect]
     Active Substance: MELPHALAN
     Dosage: 35 MICROGRAM IN RIGHT EYE
  4. MELPHALAN INJECTION [Suspect]
     Active Substance: MELPHALAN
     Dosage: 30 MICROGRAM IN RIGHT EYE
  5. MELPHALAN INJECTION [Suspect]
     Active Substance: MELPHALAN
     Dosage: 30 MICROGRAM IN RIGHT EYE
  6. MELPHALAN INJECTION [Suspect]
     Active Substance: MELPHALAN
     Dosage: 20 MICROGRAM IN RIGHT EYE
  7. MELPHALAN INJECTION [Suspect]
     Active Substance: MELPHALAN
     Dosage: 30 MICROGRAM IN LEFT EYE
  8. MELPHALAN INJECTION [Suspect]
     Active Substance: MELPHALAN
     Dosage: 30 MICROGRAM IN LEFT EYE
  9. MELPHALAN INJECTION [Suspect]
     Active Substance: MELPHALAN
     Dosage: 20 MICROGRAM IN LEFT EYE

REACTIONS (7)
  - Vitreous haemorrhage [Unknown]
  - Chorioretinal atrophy [Unknown]
  - Vascular occlusion [Unknown]
  - Product use issue [Unknown]
  - Optic atrophy [Unknown]
  - Product use in unapproved indication [Unknown]
  - Retinal vasculitis [Unknown]
